FAERS Safety Report 15895534 (Version 1)
Quarter: 2019Q1

REPORT INFORMATION
  Report Type: Spontaneous
  Country: FR (occurrence: FR)
  Receive Date: 20190131
  Receipt Date: 20190131
  Transmission Date: 20190417
  Serious: Yes (Hospitalization)
  Sender: FDA-Public Use
  Company Number: FR-PFIZER INC-2019037250

PATIENT
  Age: 89 Year
  Sex: Female
  Weight: 54 kg

DRUGS (13)
  1. LASILIX [FUROSEMIDE] [Suspect]
     Active Substance: FUROSEMIDE
     Indication: HYPERTENSION
     Dosage: 40 MG, 1X/DAY (1-0-0)
     Route: 048
     Dates: start: 2016
  2. DOLIPRANE [Suspect]
     Active Substance: ACETAMINOPHEN
     Indication: PAIN
     Dosage: 4 G, 1X/DAY (2-2-2-2)
     Route: 048
     Dates: start: 2016
  3. MYCOSTER (CICLOPIROX OLAMINE) [Suspect]
     Active Substance: CICLOPIROX OLAMINE
     Indication: DERMATOPHYTOSIS
     Dosage: 1 DF, 1X/DAY (1X/DAY ON NAILS)
     Route: 003
     Dates: start: 201808, end: 20181120
  4. VITAMIN B12 [HYDROXOCOBALAMIN] [Suspect]
     Active Substance: HYDROXOCOBALAMIN
     Indication: HYPOVITAMINOSIS
     Dosage: 1 DF, WEEKLY (1-0-0)
     Route: 048
     Dates: start: 201808, end: 20181120
  5. MODOPAR [Suspect]
     Active Substance: BENSERAZIDE HYDROCHLORIDE\LEVODOPA
     Indication: PARKINSON^S DISEASE
     Dosage: 2 DF, 1X/DAY (1-0-1)
     Route: 048
     Dates: start: 2016, end: 20181122
  6. STAGID [Suspect]
     Active Substance: METFORMIN PAMOATE
     Indication: TYPE 2 DIABETES MELLITUS
     Dosage: 2100 MG, 1X/DAY (1-1-1)
     Route: 048
     Dates: start: 201808
  7. LERCAN [Suspect]
     Active Substance: LERCANIDIPINE
     Indication: HYPERTENSION
     Dosage: 10 MG, 1X/DAY (0-0-1)
     Route: 048
     Dates: start: 2016
  8. LYSANXIA [Suspect]
     Active Substance: PRAZEPAM
     Indication: ANXIETY
     Dosage: 10 GTT, 1X/DAY (5-0-5 (GTT) SB)
     Route: 048
     Dates: start: 201808, end: 20181120
  9. SULFARLEM [Suspect]
     Active Substance: ANETHOLTRITHION
     Indication: APTYALISM
     Dosage: 150 MG, 1X/DAY (2-2-2)
     Route: 048
     Dates: start: 201808
  10. ALPRAZOLAM. [Suspect]
     Active Substance: ALPRAZOLAM
     Indication: ANXIETY
     Dosage: 1 MG, 1X/DAY (1-0.5-1 (0.25MG))
     Route: 048
     Dates: start: 2016
  11. LEVOTHYROX [Suspect]
     Active Substance: LEVOTHYROXINE
     Indication: HYPOTHYROIDISM
     Dosage: 50 UG, 1X/DAY (1-0-0)
     Route: 048
     Dates: start: 2016
  12. BISOCE [Suspect]
     Active Substance: BISOPROLOL
     Indication: CARDIAC FAILURE
     Dosage: 2.5 MG, 1X/DAY (1-0-0)
     Route: 048
     Dates: start: 2016
  13. ANAFRANIL [Suspect]
     Active Substance: CLOMIPRAMINE HYDROCHLORIDE
     Indication: DEPRESSION
     Dosage: 75 MG, 1X/DAY (1-0-0)
     Route: 048
     Dates: start: 2016

REACTIONS (4)
  - Dermatophytosis [None]
  - Type 2 diabetes mellitus [None]
  - General physical health deterioration [Not Recovered/Not Resolved]
  - Fall [Not Recovered/Not Resolved]

NARRATIVE: CASE EVENT DATE: 20181107
